FAERS Safety Report 6387995-4 (Version None)
Quarter: 2009Q4

REPORT INFORMATION
  Report Type: 
  Country: None (occurrence: None)
  Receive Date: 20091005
  Receipt Date: 20090925
  Transmission Date: 20100525
  Serious: Yes (Hospitalization)
  Sender: FDA-Public Use
  Company Number: US-ALEXION-A200900802

PATIENT
  Sex: Male

DRUGS (22)
  1. SOLIRIS [Suspect]
     Indication: PAROXYSMAL NOCTURNAL HAEMOGLOBINURIA
     Dosage: 600 MG, Q WEEK FOR 4 WEEKS
     Route: 042
     Dates: start: 20070502, end: 20070523
  2. SOLIRIS [Suspect]
     Dosage: 900 MG, Q 2 WEEKS
     Route: 042
     Dates: start: 20070530
  3. SOLIRIS [Suspect]
     Dosage: 900 MG, Q 12 DAYS
     Route: 042
  4. SALINE                             /00075401/ [Concomitant]
     Indication: NASAL DRYNESS
     Dosage: UNK
  5. METHADONE [Concomitant]
     Dosage: 20 MG, TID (Q8H)
     Route: 048
  6. METHADONE [Concomitant]
     Dosage: 30 MG, TID (Q8H)
     Route: 048
     Dates: start: 20090901
  7. FRAGMIN [Concomitant]
     Dosage: 12500 IU, QD
     Route: 058
  8. SPIRIVA [Concomitant]
     Dosage: 18 UG, QD
  9. COMBIVENT [Concomitant]
     Dosage: 2 INHALATIONS 4 X DAILY
  10. SENNA-MINT WAF [Concomitant]
     Dosage: 2 TABLETS TWICE DAILY
     Route: 048
  11. ALBUTEROL [Concomitant]
     Indication: DYSPNOEA
     Dosage: 2 INHALATIONS 4 X DAILY AS NEEDED
  12. FLONASE [Concomitant]
     Dosage: ONE SPRAY DAILY
  13. SEROQUEL [Concomitant]
     Dosage: 50 MG, TID
     Route: 048
  14. CYMBALTA [Concomitant]
     Dosage: 60 MG, TID
     Route: 048
  15. FOLIC ACID [Concomitant]
     Dosage: 1 MG, QD
     Route: 048
  16. KLONOPIN [Concomitant]
     Dosage: 1 MG, QD
     Route: 048
  17. POTASSIUM CHLORIDE [Concomitant]
     Dosage: 20 MEQ, QD
     Route: 048
  18. MARINOL [Concomitant]
     Dosage: 2.5 MG, BID
     Route: 048
  19. ADVAIR DISKUS 100/50 [Concomitant]
     Dosage: 500/50 MCG TWICE DAILY
  20. PRILOSEC [Concomitant]
     Dosage: 20 MG, QID
     Route: 048
  21. NYSTATIN [Concomitant]
     Dosage: 5 MG, QID
  22. OXYGEN [Concomitant]
     Indication: CHRONIC OBSTRUCTIVE PULMONARY DISEASE
     Dosage: UNK

REACTIONS (2)
  - CHRONIC OBSTRUCTIVE PULMONARY DISEASE [None]
  - STAPHYLOCOCCAL INFECTION [None]
